FAERS Safety Report 7758581-6 (Version None)
Quarter: 2011Q3

REPORT INFORMATION
  Report Type: 
  Country: None (occurrence: None)
  Receive Date: 20110919
  Receipt Date: 20110906
  Transmission Date: 20111222
  Serious: Yes (Other)
  Sender: FDA-Public Use
  Company Number: US-ELI_LILLY_AND_COMPANY-US201106002132

PATIENT
  Sex: Female
  Weight: 78.73 kg

DRUGS (11)
  1. HYDROCHLOROTHIAZIDE [Concomitant]
     Dosage: 25 MG, UNKNOWN
  2. CALCIUM CARBONATE [Concomitant]
     Dosage: UNK
  3. BONIVA [Concomitant]
     Dosage: UNK
  4. DILTIAZEM [Concomitant]
     Dosage: 180 MG, UNKNOWN
  5. POTASSIUM [Concomitant]
     Dosage: 10 MEQ, UNKNOWN
  6. TYLENOL (CAPLET) [Concomitant]
     Dosage: UNK
  7. FISH OIL [Concomitant]
  8. VYTORIN [Concomitant]
     Dosage: UNK
  9. VITAMIN TAB [Concomitant]
     Dosage: UNK, QD
  10. CYMBALTA [Suspect]
     Indication: DEPRESSION
     Dosage: 60 MG, QD
     Route: 048
     Dates: start: 20110309, end: 20110501
  11. GLUCOSAMINE [Concomitant]
     Dosage: UNK

REACTIONS (4)
  - SKIN DISORDER [None]
  - SKIN HAEMORRHAGE [None]
  - MALIGNANT MELANOMA IN SITU [None]
  - CONTUSION [None]
